FAERS Safety Report 14977712 (Version 5)
Quarter: 2018Q3

REPORT INFORMATION
  Report Type: Report from Study
  Country: NL (occurrence: NL)
  Receive Date: 20180606
  Receipt Date: 20180905
  Transmission Date: 20181010
  Serious: Yes (Hospitalization)
  Sender: FDA-Public Use
  Company Number: NL-SUN PHARMACEUTICAL INDUSTRIES LTD-2018RR-174967

PATIENT
  Age: 64 Year
  Sex: Female
  Weight: 79 kg

DRUGS (5)
  1. GEMCITABINE [Suspect]
     Active Substance: GEMCITABINE\GEMCITABINE HYDROCHLORIDE
     Indication: PANCREATIC CARCINOMA
     Dosage: 750 MG/M2, 2X4 WEEKS
     Route: 042
     Dates: start: 20180501
  2. ODOMZO [Suspect]
     Active Substance: SONIDEGIB
     Indication: PANCREATIC CARCINOMA
     Dosage: 200 MG, QD
     Route: 048
     Dates: start: 20180501
  3. ABRAXANE [Suspect]
     Active Substance: PACLITAXEL
     Indication: PANCREATIC CARCINOMA
     Dosage: 75 MG/M2, 2X4 WEEKS
     Route: 042
     Dates: start: 20180501
  4. VANCOMYCIN [Concomitant]
     Active Substance: VANCOMYCIN
     Indication: PRODUCT USED FOR UNKNOWN INDICATION
     Dosage: UNK
     Route: 065
     Dates: start: 20180602, end: 20180604
  5. CEFTRIAXONE. [Concomitant]
     Active Substance: CEFTRIAXONE
     Indication: PRODUCT USED FOR UNKNOWN INDICATION
     Dosage: UNK
     Route: 065
     Dates: start: 20180602, end: 20180604

REACTIONS (3)
  - Pyrexia [Recovered/Resolved]
  - Pyrexia [Recovered/Resolved with Sequelae]
  - Hypotension [Unknown]

NARRATIVE: CASE EVENT DATE: 20180518
